FAERS Safety Report 23136785 (Version 1)
Quarter: 2023Q4

REPORT INFORMATION
  Report Type: Spontaneous
  Country: GB (occurrence: GB)
  Receive Date: 20231102
  Receipt Date: 20231102
  Transmission Date: 20240110
  Serious: Yes (Hospitalization)
  Sender: FDA-Public Use
  Company Number: None

PATIENT
  Age: 23 Year
  Sex: Male
  Weight: 82 kg

DRUGS (3)
  1. ARIPIPRAZOLE [Suspect]
     Active Substance: ARIPIPRAZOLE
     Indication: Mania
     Dosage: 15 MILLIGRAM DAILY; 15MG IN THE MORNING; DURATION: 26 DAYS ;
     Dates: start: 20230818, end: 20230913
  2. HALOPERIDOL [Concomitant]
     Active Substance: HALOPERIDOL
     Indication: Agitation
     Dates: start: 20230819
  3. LORAZEPAM [Concomitant]
     Active Substance: LORAZEPAM
     Indication: Agitation
     Dates: start: 20230816

REACTIONS (1)
  - Mental impairment [Recovering/Resolving]

NARRATIVE: CASE EVENT DATE: 20230904
